FAERS Safety Report 17874987 (Version 1)
Quarter: 2020Q2

REPORT INFORMATION
  Report Type: Spontaneous
  Country: US (occurrence: US)
  Receive Date: 20200608
  Receipt Date: 20200608
  Transmission Date: 20200714
  Serious: No
  Sender: FDA-Public Use
  Company Number: None

PATIENT
  Age: 52 Year
  Sex: Female
  Weight: 67.5 kg

DRUGS (4)
  1. AMBIEN [Concomitant]
     Active Substance: ZOLPIDEM TARTRATE
  2. WELLBUTRIN [Concomitant]
     Active Substance: BUPROPION HYDROCHLORIDE
  3. ARMOUR THYROID [Concomitant]
     Active Substance: THYROID, PORCINE
  4. NP THYROID [Suspect]
     Active Substance: LEVOTHYROXINE\LIOTHYRONINE
     Indication: HYPOTHYROIDISM
     Dosage: ?
     Route: 048

REACTIONS (6)
  - Tachycardia [None]
  - Muscular weakness [None]
  - Fatigue [None]
  - Product substitution issue [None]
  - Depressed level of consciousness [None]
  - Dizziness [None]

NARRATIVE: CASE EVENT DATE: 20200128
